FAERS Safety Report 24699580 (Version 1)
Quarter: 2024Q4

REPORT INFORMATION
  Report Type: Spontaneous
  Country: CN (occurrence: CN)
  Receive Date: 20241205
  Receipt Date: 20241205
  Transmission Date: 20250115
  Serious: Yes (Hospitalization)
  Sender: NOVITIUM PHARMA
  Company Number: CN-NOVITIUMPHARMA-2024CNNVP02735

PATIENT
  Age: 15 Year
  Sex: Male

DRUGS (7)
  1. PREDNISONE [Suspect]
     Active Substance: PREDNISONE
     Indication: Face oedema
  2. CEFIXIME [Concomitant]
     Active Substance: CEFIXIME
     Indication: Face oedema
     Route: 048
  3. DEXAMETHASONE [Concomitant]
     Active Substance: DEXAMETHASONE
     Indication: Product used for unknown indication
  4. TUCIDINOSTAT [Concomitant]
     Active Substance: TUCIDINOSTAT
  5. CYCLOPHOSPHAMIDE [Concomitant]
     Active Substance: CYCLOPHOSPHAMIDE
     Indication: Peripheral T-cell lymphoma unspecified
  6. DOXORUBICIN [Concomitant]
     Active Substance: DOXORUBICIN
     Indication: Peripheral T-cell lymphoma unspecified
  7. VINDESINE [Concomitant]
     Active Substance: VINDESINE
     Indication: Peripheral T-cell lymphoma unspecified

REACTIONS (1)
  - Intentional product misuse [Unknown]
